FAERS Safety Report 20023536 (Version 1)
Quarter: 2021Q4

REPORT INFORMATION
  Report Type: Spontaneous
  Country: US (occurrence: US)
  Receive Date: 20211102
  Receipt Date: 20211102
  Transmission Date: 20220303
  Serious: Yes (Hospitalization, Other)
  Sender: FDA-Public Use
  Company Number: US-ALLERGAN-2136204US

PATIENT
  Sex: Female

DRUGS (3)
  1. LINZESS [Interacting]
     Active Substance: LINACLOTIDE
     Indication: Gastric disorder
  2. DUPIXENT [Suspect]
     Active Substance: DUPILUMAB
     Indication: Product used for unknown indication
     Dosage: 300 MG EVERY OTHER WEEK
     Route: 058
     Dates: start: 20200923
  3. UNSPECIFIED INGREDIENT [Interacting]
     Active Substance: UNSPECIFIED INGREDIENT
     Indication: Product used for unknown indication

REACTIONS (5)
  - Functional gastrointestinal disorder [Recovered/Resolved]
  - Drug interaction [Unknown]
  - Dehydration [Unknown]
  - Vein rupture [Unknown]
  - Rectal haemorrhage [Unknown]

NARRATIVE: CASE EVENT DATE: 20210805
